FAERS Safety Report 24756839 (Version 1)
Quarter: 2024Q4

REPORT INFORMATION
  Report Type: Spontaneous
  Country: CN (occurrence: CN)
  Receive Date: 20241220
  Receipt Date: 20241220
  Transmission Date: 20250114
  Serious: Yes (Hospitalization)
  Sender: ASTELLAS
  Company Number: CN-ASTELLAS-2024-AER-026180

PATIENT
  Age: 39 Year
  Sex: Male
  Weight: 77 kg

DRUGS (5)
  1. XOSPATA [Suspect]
     Active Substance: GILTERITINIB
     Indication: Acute monocytic leukaemia
     Dosage: THIRD CYCLE?80MG PO QD Q21D
     Route: 048
     Dates: start: 20241113, end: 20241202
  2. OMACETAXINE MEPESUCCINATE [Suspect]
     Active Substance: OMACETAXINE MEPESUCCINATE
     Indication: Acute monocytic leukaemia
     Dosage: 2MG IVGTT D1-5
     Route: 042
     Dates: start: 20241113, end: 20241117
  3. CYTARABINE [Suspect]
     Active Substance: CYTARABINE
     Indication: Acute monocytic leukaemia
     Dosage: CYTARABINE 3G IVGTT Q12 D1-3
     Route: 042
     Dates: start: 20241113, end: 20241115
  4. SODIUM CHLORIDE [Concomitant]
     Active Substance: SODIUM CHLORIDE
     Indication: Vehicle solution use
     Route: 042
     Dates: start: 20241113, end: 20241115
  5. DEXTROSE [Concomitant]
     Active Substance: DEXTROSE MONOHYDRATE
     Indication: Vehicle solution use
     Route: 042
     Dates: start: 20241113, end: 20241117

REACTIONS (3)
  - Myelosuppression [Recovering/Resolving]
  - Underdose [Unknown]
  - Off label use [Unknown]

NARRATIVE: CASE EVENT DATE: 20241113
